FAERS Safety Report 16332664 (Version 5)
Quarter: 2019Q3

REPORT INFORMATION
  Report Type: Spontaneous
  Country: US (occurrence: US)
  Receive Date: 20190520
  Receipt Date: 20190809
  Transmission Date: 20191004
  Serious: Yes (Other)
  Sender: FDA-Public Use
  Company Number: US-PFIZER INC-2019212761

PATIENT
  Age: 72 Year
  Sex: Female

DRUGS (1)
  1. IBRANCE [Suspect]
     Active Substance: PALBOCICLIB
     Indication: BREAST CANCER
     Dosage: 100 MG, 1X/DAY
     Dates: start: 20180915, end: 201902

REACTIONS (4)
  - Alopecia [Not Recovered/Not Resolved]
  - Diverticulum [Unknown]
  - Fatigue [Not Recovered/Not Resolved]
  - Nausea [Unknown]
